FAERS Safety Report 6937688-7 (Version None)
Quarter: 2010Q3

REPORT INFORMATION
  Report Type: 
  Country: None (occurrence: None)
  Receive Date: 20100820
  Receipt Date: 20100820
  Transmission Date: 20110219
  Serious: Yes (Hospitalization, Disabling)
  Sender: FDA-Public Use
  Company Number: None

PATIENT
  Age: 64 Year
  Sex: Female
  Weight: 70.3075 kg

DRUGS (2)
  1. ALENDRONATE SODIUM [Suspect]
     Indication: OSTEOPOROSIS
     Dates: start: 20090701, end: 20100301
  2. FOSAMAX [Suspect]
     Indication: OSTEOPOROSIS
     Dates: start: 19970101, end: 20090601

REACTIONS (3)
  - FALL [None]
  - FEMUR FRACTURE [None]
  - PATHOLOGICAL FRACTURE [None]
